FAERS Safety Report 10489988 (Version 2)
Quarter: 2014Q4

REPORT INFORMATION
  Report Type: Spontaneous
  Country: DK (occurrence: IT)
  Receive Date: 20141002
  Receipt Date: 20141106
  Transmission Date: 20150528
  Serious: Yes (Hospitalization)
  Sender: FDA-Public Use
  Company Number: IT-FRI-1000071183

PATIENT
  Age: 63 Year
  Sex: Female

DRUGS (8)
  1. CITALOPRAM [Suspect]
     Active Substance: CITALOPRAM HYDROBROMIDE
     Indication: DEPRESSION
     Dosage: 15 MG
     Route: 048
     Dates: start: 20140213, end: 20140913
  2. NEO-LOTAN [Concomitant]
     Active Substance: LOSARTAN POTASSIUM
     Dosage: 100 MG
     Route: 048
  3. FLANTADIN [Concomitant]
     Active Substance: DEFLAZACORT
     Dosage: 7.5 MG
     Route: 048
  4. PLAQUENIL [Concomitant]
     Active Substance: HYDROXYCHLOROQUINE SULFATE
     Dosage: 400 MG
  5. CONGESCOR [Concomitant]
     Active Substance: BISOPROLOL
     Dosage: 2.5 MG
     Route: 048
  6. CLEXANE [Concomitant]
     Active Substance: ENOXAPARIN SODIUM
     Dosage: 0.4 - 1 VIAL
  7. LUCEN [Concomitant]
     Active Substance: ESOMEPRAZOLE
     Dosage: 20 MG
     Route: 048
  8. LEXOTAN [Concomitant]
     Active Substance: BROMAZEPAM
     Dosage: 10 DOPS
     Route: 048

REACTIONS (4)
  - Anuria [Recovering/Resolving]
  - Hyponatraemia [Recovering/Resolving]
  - Oliguria [Recovering/Resolving]
  - Oedema [Recovering/Resolving]

NARRATIVE: CASE EVENT DATE: 20140813
